FAERS Safety Report 6860002-2 (Version None)
Quarter: 2010Q3

REPORT INFORMATION
  Report Type: 
  Country: None (occurrence: None)
  Receive Date: 20100720
  Receipt Date: 20100708
  Transmission Date: 20110219
  Serious: Yes (Hospitalization, Other)
  Sender: FDA-Public Use
  Company Number: GB-PFIZER INC-2010082277

PATIENT
  Sex: Female

DRUGS (1)
  1. LYRICA [Suspect]
     Dosage: 900 MG, 1X/DAY

REACTIONS (6)
  - DIARRHOEA [None]
  - EPILEPSY [None]
  - HYPERHIDROSIS [None]
  - LIVER DISORDER [None]
  - NAUSEA [None]
  - WITHDRAWAL SYNDROME [None]
